FAERS Safety Report 5931941-1 (Version None)
Quarter: 2008Q4

REPORT INFORMATION
  Report Type: 
  Country: None (occurrence: None)
  Receive Date: 20081027
  Receipt Date: 20081021
  Transmission Date: 20090506
  Serious: Yes (Other)
  Sender: FDA-Public Use
  Company Number: PHEH2006US08866

PATIENT
  Sex: Male

DRUGS (1)
  1. ZOMETA [Suspect]

REACTIONS (10)
  - ANXIETY [None]
  - BRONCHITIS [None]
  - EXTRASKELETAL OSSIFICATION [None]
  - HILAR LYMPHADENOPATHY [None]
  - INJURY [None]
  - LUNG NEOPLASM [None]
  - METASTATIC NEOPLASM [None]
  - OSTEONECROSIS [None]
  - PAIN [None]
  - PROSTATE CANCER [None]
